FAERS Safety Report 23571370 (Version 1)
Quarter: 2024Q1

REPORT INFORMATION
  Report Type: Other
  Country: KR (occurrence: KR)
  Receive Date: 20240227
  Receipt Date: 20240227
  Transmission Date: 20240410
  Serious: Yes (Hospitalization)
  Sender: FDA-Public Use
  Company Number: KR-SIGA Technologies, Inc.-2153745

PATIENT
  Age: 30 Year
  Sex: Male

DRUGS (4)
  1. TPOXX [Suspect]
     Active Substance: TECOVIRIMAT
     Route: 048
  2. AMPICILLIN SODIUM [Concomitant]
     Active Substance: AMPICILLIN SODIUM
     Route: 042
  3. AMPICILLIN AND SULBACTAM [Concomitant]
     Active Substance: AMPICILLIN SODIUM\SULBACTAM SODIUM
     Route: 042
  4. AMPICILLIN AND SULBACTAM [Concomitant]
     Active Substance: AMPICILLIN SODIUM\SULBACTAM SODIUM
     Route: 048

REACTIONS (2)
  - Haematochezia [Recovered/Resolved with Sequelae]
  - Condition aggravated [Recovering/Resolving]
